FAERS Safety Report 7017988-5 (Version None)
Quarter: 2010Q3

REPORT INFORMATION
  Report Type: 
  Country: None (occurrence: None)
  Receive Date: 20100923
  Receipt Date: 20100915
  Transmission Date: 20110219
  Serious: Yes (Other)
  Sender: FDA-Public Use
  Company Number: 018863

PATIENT
  Sex: Female
  Weight: 53.5 kg

DRUGS (5)
  1. KEPPRA [Suspect]
     Indication: CONVULSION
     Dosage: START DATE 2008-2009
     Dates: end: 20100101
  2. KEPPRA [Suspect]
     Indication: CONVULSION
     Dosage: 1500 MG QD, START DATE APR/MAR-2010 ORAL, 500 MG QD, ^SAMPLE^ DOSE ORAL
     Route: 048
     Dates: start: 20100101, end: 20100912
  3. KEPPRA [Suspect]
     Indication: CONVULSION
     Dosage: 1500 MG QD, START DATE APR/MAR-2010 ORAL, 500 MG QD, ^SAMPLE^ DOSE ORAL
     Route: 048
     Dates: start: 20100913, end: 20100913
  4. LACOSAMIDE [Suspect]
     Indication: CONVULSION
     Dosage: 50 MG ORAL, 50 MG BID ORAL
     Route: 048
     Dates: start: 20100907, end: 20100907
  5. LACOSAMIDE [Suspect]
     Indication: CONVULSION
     Dosage: 50 MG ORAL, 50 MG BID ORAL
     Route: 048
     Dates: start: 20100909, end: 20100910

REACTIONS (3)
  - CONVULSION [None]
  - INCORRECT DOSE ADMINISTERED [None]
  - THERAPY REGIMEN CHANGED [None]
